FAERS Safety Report 8530578 (Version 2)
Quarter: 2014Q2

REPORT INFORMATION
  Report Type: Spontaneous
  Country: None (occurrence: None)
  Receive Date: 20100416
  Receipt Date: 20140416
  Transmission Date: 20141212
  Serious: Yes (Hospitalization, Other)
  Sender: FDA-Public Use
  Company Number: AUR-APL-2010-00952

PATIENT
  Age: 63 Year
  Sex: Male

DRUGS (10)
  1. ATENOLOL [Suspect]
     Indication: HYPERTENSION
     Dosage: 50MG, DAILY
  2. OPIUM\NALOXONE [Suspect]
     Indication: PAIN
     Dosage: DAILY, ORAL
     Route: 048
     Dates: start: 20090827, end: 20090923
  3. CILAZAPRIL ANHYDROUS [Suspect]
  4. FENTANYL [Concomitant]
  5. FLUANXOL [Concomitant]
  6. FUROSEMIDE [Concomitant]
  7. LEVOTHYROXINE [Concomitant]
  8. MACROGOL [Concomitant]
  9. MEPERIDINE HCL [Concomitant]
  10. PREGABALIN [Concomitant]

REACTIONS (2)
  - Aggression [None]
  - Abnormal behaviour [None]
